FAERS Safety Report 10407166 (Version 2)
Quarter: 2014Q4

REPORT INFORMATION
  Report Type: Spontaneous
  Country: US (occurrence: US)
  Receive Date: 20140825
  Receipt Date: 20141030
  Transmission Date: 20150528
  Serious: No
  Sender: FDA-Public Use
  Company Number: US-ASTRAZENECA-2014SE60914

PATIENT
  Age: 64 Year
  Sex: Female
  Weight: 113.4 kg

DRUGS (13)
  1. SYMBICORT [Suspect]
     Active Substance: BUDESONIDE\FORMOTEROL FUMARATE DIHYDRATE
     Indication: CHRONIC OBSTRUCTIVE PULMONARY DISEASE
     Dosage: 2 PUFFS BID 80 4.5MCG
     Route: 055
     Dates: start: 20140723
  2. BAYER LOW DOSE ASPIRIN [Concomitant]
     Dosage: 1 TAB DAILY
     Route: 048
  3. GLUCOSAMIN [Concomitant]
     Indication: SUPPLEMENTATION THERAPY
     Dosage: 2 TABS DAILY
     Route: 048
  4. XANAX [Concomitant]
     Active Substance: ALPRAZOLAM
     Dosage: 2.5 TABLETS DAILY
     Route: 048
  5. VITAMIN D [Concomitant]
     Active Substance: CHOLECALCIFEROL
     Indication: NUTRITIONAL SUPPLEMENTATION
     Dosage: 1 CAP WEEK
     Route: 048
  6. POTTASSIUM [Concomitant]
     Indication: SUPPLEMENTATION THERAPY
     Dosage: 1 TAB DAILY
     Route: 048
  7. CETIRIZINE [Concomitant]
     Active Substance: CETIRIZINE HYDROCHLORIDE
     Indication: MULTIPLE ALLERGIES
     Dosage: 1 TAB QAM
     Route: 048
  8. SERTRALINE HCL ZOLOFT [Concomitant]
     Dosage: 1 TAB DAILY
     Route: 048
  9. CHONDROITIN [Concomitant]
     Active Substance: CHONDROITIN
  10. SYMBICORT [Suspect]
     Active Substance: BUDESONIDE\FORMOTEROL FUMARATE DIHYDRATE
     Indication: CHRONIC OBSTRUCTIVE PULMONARY DISEASE
     Dosage: 2 PUFFS BID 80 4.5MCG
     Route: 055
     Dates: start: 20140723
  11. LIPITOR [Concomitant]
     Active Substance: ATORVASTATIN CALCIUM
     Indication: BLOOD CHOLESTEROL ABNORMAL
     Dosage: 1 TAB DAILY
     Route: 048
  12. PRILOSEC [Suspect]
     Active Substance: OMEPRAZOLE MAGNESIUM
     Dosage: GENERIC 2 CAPS DAILY
     Route: 048
  13. LOSARTAN AND HYDROCHLOROTHIAZIDE [Concomitant]
     Active Substance: HYDROCHLOROTHIAZIDE\LOSARTAN POTASSIUM
     Indication: BLOOD PRESSURE ABNORMAL
     Dosage: 1 TAB DAILY
     Route: 048

REACTIONS (4)
  - Muscle spasms [Unknown]
  - Feeling abnormal [Unknown]
  - Drug dose omission [Unknown]
  - Off label use [Unknown]

NARRATIVE: CASE EVENT DATE: 201407
